FAERS Safety Report 10419327 (Version 2)
Quarter: 2014Q3

REPORT INFORMATION
  Report Type: Report from Study
  Country: CA (occurrence: CA)
  Receive Date: 20140829
  Receipt Date: 20140829
  Transmission Date: 20150326
  Serious: Yes (Death, Hospitalization)
  Sender: FDA-Public Use
  Company Number: CA-EISAI INC-E2080-00660-SOL-CA

PATIENT
  Age: 22 Year
  Sex: Male

DRUGS (7)
  1. BANZEL [Suspect]
     Active Substance: RUFINAMIDE
     Indication: LENNOX-GASTAUT SYNDROME
     Dosage: 2000 MG/DAY
     Route: 048
     Dates: start: 201310, end: 20140321
  2. RISPERDAL [Concomitant]
     Active Substance: RISPERIDONE
  3. CARBAMAZEPINE. [Concomitant]
     Active Substance: CARBAMAZEPINE
  4. FENADINE [Concomitant]
     Dosage: 0.075
  5. LAMOTRIGINE. [Concomitant]
     Active Substance: LAMOTRIGINE
  6. ANTIPSYCHOTICS [Concomitant]
     Active Substance: UNSPECIFIED INGREDIENT
     Dosage: UNKNOWN
  7. SEROQUEL [Concomitant]
     Active Substance: QUETIAPINE FUMARATE
     Dosage: 150 OD, 100 OD, 550 OD

REACTIONS (5)
  - Dizziness [Unknown]
  - Cardio-respiratory arrest [Fatal]
  - Vagal nerve stimulator implantation [Unknown]
  - Convulsion [Unknown]
  - Balance disorder [Unknown]

NARRATIVE: CASE EVENT DATE: 20131008
